FAERS Safety Report 8613627-8 (Version None)
Quarter: 2012Q3

REPORT INFORMATION
  Report Type: 
  Country: None (occurrence: None)
  Receive Date: 20120823
  Receipt Date: 20120725
  Transmission Date: 20120928
  Serious: No
  Sender: FDA-Public Use
  Company Number: US-009507513-1208USA001076

PATIENT

DRUGS (1)
  1. NASONEX [Suspect]
     Route: 045

REACTIONS (2)
  - NASAL DISCOMFORT [None]
  - PARANASAL SINUS DISCOMFORT [None]
